FAERS Safety Report 25324094 (Version 2)
Quarter: 2025Q2

REPORT INFORMATION
  Report Type: Spontaneous
  Country: US (occurrence: US)
  Receive Date: 20250516
  Receipt Date: 20250605
  Transmission Date: 20250716
  Serious: No
  Sender: BAUSCH AND LOMB
  Company Number: US-BAUSCHBL-2025BNL008226

PATIENT
  Age: 82 Year
  Sex: Female
  Weight: 65 kg

DRUGS (1)
  1. LATANOPROST [Suspect]
     Active Substance: LATANOPROST
     Indication: Ocular discomfort
     Route: 065
     Dates: start: 20250502, end: 20250505

REACTIONS (5)
  - Visual impairment [Recovering/Resolving]
  - Visual field defect [Recovering/Resolving]
  - Discomfort [Recovering/Resolving]
  - Vision blurred [Unknown]
  - Product quality issue [Unknown]

NARRATIVE: CASE EVENT DATE: 20250502
